FAERS Safety Report 6475790-7 (Version None)
Quarter: 2009Q4

REPORT INFORMATION
  Report Type: 
  Country: None (occurrence: None)
  Receive Date: 20091204
  Receipt Date: 20091201
  Transmission Date: 20100525
  Serious: Yes (Death, Hospitalization)
  Sender: FDA-Public Use
  Company Number: IN-ELI_LILLY_AND_COMPANY-IN200912000106

PATIENT
  Age: 35 Year
  Sex: Male

DRUGS (3)
  1. XIGRIS [Suspect]
     Indication: MULTI-ORGAN FAILURE
     Dosage: UNK, UNK
     Dates: start: 20091130
  2. DOPAMINE HYDROCHLORIDE [Concomitant]
  3. NORADRENALINE [Concomitant]

REACTIONS (1)
  - PULMONARY EMBOLISM [None]
